FAERS Safety Report 4751827-8 (Version None)
Quarter: 2005Q3

REPORT INFORMATION
  Report Type: 
  Country: None (occurrence: None)
  Receive Date: 20050824
  Receipt Date: 20050817
  Transmission Date: 20060218
  Serious: Yes (Other)
  Sender: FDA-Public Use
  Company Number: US-ABBOTT-05P-163-0308567-00

PATIENT
  Age: 61 Year
  Sex: Male
  Weight: 73 kg

DRUGS (14)
  1. DILAUDID [Suspect]
     Indication: WOUND COMPLICATION
     Route: 042
     Dates: start: 20050716
  2. POSACONAZOLE [Interacting]
     Indication: FUNGAL INFECTION
     Route: 048
     Dates: start: 20050714
  3. PREDNISONE [Suspect]
     Indication: HAEMOLYTIC ANAEMIA
     Route: 048
     Dates: start: 20050720, end: 20050722
  4. PREDNISONE [Suspect]
     Route: 048
     Dates: start: 20050723, end: 20050726
  5. PREDNISONE [Suspect]
     Route: 048
     Dates: start: 20050727, end: 20050729
  6. PREDNISONE [Suspect]
     Route: 048
     Dates: start: 20050730
  7. MIDAZOLAM HYDROCHLORIDE [Interacting]
     Indication: ANAESTHESIA
     Route: 042
     Dates: start: 20050726, end: 20050726
  8. FENTANYL [Concomitant]
     Indication: ANAESTHESIA
     Route: 042
     Dates: start: 20050726, end: 20050726
  9. PROPOFOL [Concomitant]
     Indication: ANAESTHESIA
     Route: 042
     Dates: start: 20050726, end: 20050726
  10. ROCURONIUM BROMIDE [Concomitant]
     Indication: ANAESTHESIA
     Route: 042
     Dates: start: 20050726, end: 20050726
  11. LIDOCAINE [Concomitant]
     Indication: ANAESTHESIA
     Dates: start: 20050726, end: 20050726
  12. GLYCOPYRRONIUM BROMIDE [Concomitant]
     Indication: ANAESTHESIA
     Route: 042
     Dates: start: 20050726, end: 20050726
  13. NEOSTIGMINE [Concomitant]
     Indication: DRUG USE FOR UNKNOWN INDICATION
     Route: 042
     Dates: start: 20050726, end: 20050726
  14. HYDROMORPHONE HYDROCHLORIDE [Concomitant]
     Indication: WOUND COMPLICATION
     Route: 042
     Dates: start: 20050716

REACTIONS (7)
  - DRUG INTERACTION [None]
  - HAEMOLYTIC ANAEMIA [None]
  - HAEMORRHAGE [None]
  - HYPERBILIRUBINAEMIA [None]
  - LEUKOCYTOSIS [None]
  - PSYCHOTIC DISORDER [None]
  - RESPIRATORY DEPRESSION [None]
